FAERS Safety Report 18474013 (Version 2)
Quarter: 2020Q4

REPORT INFORMATION
  Report Type: Report from Study
  Country: CA (occurrence: CA)
  Receive Date: 20201106
  Receipt Date: 20201217
  Transmission Date: 20210114
  Serious: Yes (Other)
  Sender: FDA-Public Use
  Company Number: CA-JNJFOC-20201051693

PATIENT
  Age: 12 Year
  Sex: Female
  Weight: 63.5 kg

DRUGS (3)
  1. REMICADE [Suspect]
     Active Substance: INFLIXIMAB
     Indication: COLITIS ULCERATIVE
     Route: 042
     Dates: start: 20201001
  2. PREDNISONE. [Concomitant]
     Active Substance: PREDNISONE
     Indication: PRODUCT USED FOR UNKNOWN INDICATION
     Route: 048
     Dates: start: 20201104
  3. PREDNISONE. [Concomitant]
     Active Substance: PREDNISONE
     Route: 065

REACTIONS (5)
  - General physical health deterioration [Recovered/Resolved]
  - Diarrhoea [Recovering/Resolving]
  - Frequent bowel movements [Recovering/Resolving]
  - Haematochezia [Recovered/Resolved]
  - Abdominal pain [Recovered/Resolved]

NARRATIVE: CASE EVENT DATE: 20201008
